FAERS Safety Report 18010943 (Version 3)
Quarter: 2022Q2

REPORT INFORMATION
  Report Type: Report from Study
  Country: BR (occurrence: BR)
  Receive Date: 20200710
  Receipt Date: 20220419
  Transmission Date: 20220721
  Serious: Yes (Other)
  Sender: FDA-Public Use
  Company Number: BR-NOVARTISPH-PHHY2019BR111903

PATIENT
  Age: 56 Year
  Sex: Female

DRUGS (7)
  1. COSENTYX [Suspect]
     Active Substance: SECUKINUMAB
     Indication: Psoriatic arthropathy
     Dosage: 150 MG, QMO
     Route: 065
     Dates: start: 20190426, end: 20190811
  2. COSENTYX [Suspect]
     Active Substance: SECUKINUMAB
     Dosage: 300 MG, UNKNOWN
     Route: 065
     Dates: start: 20190426
  3. COSENTYX [Suspect]
     Active Substance: SECUKINUMAB
     Dosage: UNK
     Route: 065
     Dates: start: 20190510
  4. COSENTYX [Suspect]
     Active Substance: SECUKINUMAB
     Dosage: 300 MG, UNKNOWN
     Route: 065
     Dates: start: 20200702
  5. COSENTYX [Suspect]
     Active Substance: SECUKINUMAB
     Dosage: UNK
     Route: 065
     Dates: start: 20190426
  6. COSENTYX [Suspect]
     Active Substance: SECUKINUMAB
     Dosage: UNK
     Route: 065
     Dates: start: 20220305
  7. INSULIN NOS [Concomitant]
     Active Substance: INSULIN NOS
     Indication: Product used for unknown indication
     Dosage: UNK
     Route: 065

REACTIONS (21)
  - Diabetes mellitus [Not Recovered/Not Resolved]
  - Ankylosing spondylitis [Recovering/Resolving]
  - Acne [Unknown]
  - Skin discolouration [Unknown]
  - Acne pustular [Unknown]
  - Pain of skin [Unknown]
  - Wound [Not Recovered/Not Resolved]
  - Aphthous ulcer [Unknown]
  - Oral discomfort [Unknown]
  - Oral mucosal exfoliation [Unknown]
  - Oral pain [Unknown]
  - Dry mouth [Unknown]
  - Liver disorder [Unknown]
  - Burning sensation [Unknown]
  - Stress [Unknown]
  - Injury [Not Recovered/Not Resolved]
  - Pain [Unknown]
  - Psoriasis [Unknown]
  - Gait disturbance [Recovering/Resolving]
  - Anxiety [Not Recovered/Not Resolved]
  - Product dose omission in error [Unknown]

NARRATIVE: CASE EVENT DATE: 20190510
